FAERS Safety Report 12971356 (Version 1)
Quarter: 2016Q4

REPORT INFORMATION
  Report Type: Spontaneous
  Country: US (occurrence: US)
  Receive Date: 20161123
  Receipt Date: 20161123
  Transmission Date: 20170207
  Serious: No
  Sender: FDA-Public Use
  Company Number: US-JAZZ-2016-US-019899

PATIENT
  Sex: Female

DRUGS (47)
  1. METRONIDAZOLE. [Concomitant]
     Active Substance: METRONIDAZOLE
  2. TRIAMCINOLONE [Concomitant]
     Active Substance: TRIAMCINOLONE
  3. TIZANIDINE HCL [Concomitant]
     Active Substance: TIZANIDINE HYDROCHLORIDE
  4. DITROPAN XL [Concomitant]
     Active Substance: OXYBUTYNIN CHLORIDE
  5. OXYBUTYNIN [Concomitant]
     Active Substance: OXYBUTYNIN
  6. XYREM [Suspect]
     Active Substance: SODIUM OXYBATE
     Indication: CATAPLEXY
     Dosage: 3 G, BID
     Route: 048
     Dates: start: 201401, end: 201402
  7. GABAPENTIN. [Concomitant]
     Active Substance: GABAPENTIN
  8. NUVIGIL [Concomitant]
     Active Substance: ARMODAFINIL
  9. ULTRAM ER [Concomitant]
     Active Substance: TRAMADOL HYDROCHLORIDE
  10. VALTREX [Concomitant]
     Active Substance: VALACYCLOVIR HYDROCHLORIDE
  11. OMEPRAZOLE DR [Concomitant]
     Active Substance: OMEPRAZOLE
  12. SIMVASTATIN. [Concomitant]
     Active Substance: SIMVASTATIN
  13. TOLTERODINE TARTRA ER [Concomitant]
  14. BETAMETHASONE DIHYDROGEN PHOSPHATE. [Concomitant]
     Active Substance: BETAMETHASONE DIHYDROGEN PHOSPHATE
  15. CIPRO [Concomitant]
     Active Substance: CIPROFLOXACIN HYDROCHLORIDE
  16. POTASSIUM CL [Concomitant]
     Active Substance: POTASSIUM CHLORIDE
  17. LUNESTA [Concomitant]
     Active Substance: ESZOPICLONE
  18. TOPIRAMATE. [Concomitant]
     Active Substance: TOPIRAMATE
  19. PROPRANOLOL ER [Concomitant]
  20. FERROUS SULFATE. [Concomitant]
     Active Substance: FERROUS SULFATE
  21. FLUTICASONE PROPIONATE. [Concomitant]
     Active Substance: FLUTICASONE PROPIONATE
  22. NORCO [Concomitant]
     Active Substance: ACETAMINOPHEN\HYDROCODONE BITARTRATE
  23. XYREM [Suspect]
     Active Substance: SODIUM OXYBATE
     Indication: NARCOLEPSY
     Dosage: 2.25 G, BID
     Route: 048
     Dates: start: 201401, end: 201401
  24. BENZONATATE. [Concomitant]
     Active Substance: BENZONATATE
  25. ZORVOLEX [Concomitant]
     Active Substance: DICLOFENAC
  26. FLUCONAZOLE. [Concomitant]
     Active Substance: FLUCONAZOLE
  27. SINGULAIR [Concomitant]
     Active Substance: MONTELUKAST SODIUM
  28. MAXALT [Concomitant]
     Active Substance: RIZATRIPTAN BENZOATE
  29. DICLOFENAC SODIUM AND MISOPROSTOL [Concomitant]
     Active Substance: DICLOFENAC SODIUM\MISOPROSTOL
  30. TYLENOL WITH CODEINE [Concomitant]
     Active Substance: ACETAMINOPHEN\CODEINE PHOSPHATE
  31. TRAMADOL ER [Concomitant]
     Active Substance: TRAMADOL HYDROCHLORIDE
  32. VOLTAREN XR                          /00372301/ [Concomitant]
  33. CYANOCOBALAMIN. [Concomitant]
     Active Substance: CYANOCOBALAMIN
  34. PREVIDENT [Concomitant]
     Active Substance: SODIUM FLUORIDE
  35. XYREM [Suspect]
     Active Substance: SODIUM OXYBATE
     Dosage: 4.5 G, BID
     Route: 048
     Dates: start: 201402
  36. OXYBUTYNIN CHLORIDE ER [Concomitant]
     Active Substance: OXYBUTYNIN CHLORIDE
  37. KEFLEX [Concomitant]
     Active Substance: CEPHALEXIN
  38. VITAMIN D                          /00107901/ [Concomitant]
     Active Substance: ERGOCALCIFEROL
  39. CYMBALTA [Concomitant]
     Active Substance: DULOXETINE HYDROCHLORIDE
  40. ADDERALL [Concomitant]
     Active Substance: AMPHETAMINE ASPARTATE\AMPHETAMINE SULFATE\DEXTROAMPHETAMINE SACCHARATE\DEXTROAMPHETAMINE SULFATE
  41. LYRICA [Concomitant]
     Active Substance: PREGABALIN
  42. MEDROXYPROGESTERONE [Concomitant]
     Active Substance: MEDROXYPROGESTERONE
  43. VALSARTAN HCTZ [Concomitant]
     Active Substance: HYDROCHLOROTHIAZIDE\VALSARTAN
  44. AMLODIPINE BESYLATE. [Concomitant]
     Active Substance: AMLODIPINE BESYLATE
  45. PREMPRO [Concomitant]
     Active Substance: ESTROGENS, CONJUGATED\MEDROXYPROGESTERONE ACETATE
  46. MELOXICAM. [Concomitant]
     Active Substance: MELOXICAM
  47. DIVALPROEX SODIUM DR [Concomitant]
     Active Substance: DIVALPROEX SODIUM

REACTIONS (2)
  - Migraine [Recovering/Resolving]
  - Hypertension [Unknown]

NARRATIVE: CASE EVENT DATE: 2016
